FAERS Safety Report 4364490-5 (Version None)
Quarter: 2004Q2

REPORT INFORMATION
  Report Type: 
  Country: None (occurrence: None)
  Receive Date: 20040521
  Receipt Date: 20040510
  Transmission Date: 20050107
  Serious: Yes (Death)
  Sender: FDA-Public Use
  Company Number: US-JNJFOC-20040100873

PATIENT
  Age: 84 Year
  Sex: Female

DRUGS (5)
  1. DURAGESIC [Suspect]
     Indication: PAIN
     Dosage: SEE IMAGE
     Route: 062
     Dates: end: 20031223
  2. DURAGESIC [Suspect]
     Indication: PAIN
     Dosage: SEE IMAGE
     Route: 062
     Dates: start: 20031223, end: 20031228
  3. OXYCODONE HCL [Concomitant]
  4. DILAUDID (HYDROMORPHOPNE HYDROCHLORIDE) [Concomitant]
  5. MORPHINE [Concomitant]

REACTIONS (7)
  - DIALYSIS [None]
  - DRUG INEFFECTIVE [None]
  - FAILURE TO THRIVE [None]
  - PAIN EXACERBATED [None]
  - PNEUMONIA [None]
  - RENAL FAILURE [None]
  - UROSEPSIS [None]
